FAERS Safety Report 6930652-3 (Version None)
Quarter: 2010Q3

REPORT INFORMATION
  Report Type: 
  Country: None (occurrence: None)
  Receive Date: 20100818
  Receipt Date: 20100506
  Transmission Date: 20110219
  Serious: No
  Sender: FDA-Public Use
  Company Number: A0858550A

PATIENT
  Age: 57 Year
  Sex: Male

DRUGS (5)
  1. COREG CR [Suspect]
     Dosage: 20MG SINGLE DOSE
     Route: 048
     Dates: start: 20100504, end: 20100504
  2. SYMBICORT [Concomitant]
  3. LANOXIN [Concomitant]
  4. WARFARIN [Concomitant]
  5. ZESTRIL [Concomitant]

REACTIONS (3)
  - DYSPNOEA [None]
  - ILL-DEFINED DISORDER [None]
  - MIDDLE INSOMNIA [None]
